FAERS Safety Report 7436894-5 (Version None)
Quarter: 2011Q2

REPORT INFORMATION
  Report Type: 
  Country: None (occurrence: None)
  Receive Date: 20110426
  Receipt Date: 20101208
  Transmission Date: 20111010
  Serious: Yes (Hospitalization)
  Sender: FDA-Public Use
  Company Number: US-BAYER-201038265NA

PATIENT
  Age: 22 Year
  Sex: Female
  Weight: 65.76 kg

DRUGS (9)
  1. RISPERDAL [Concomitant]
     Indication: BIPOLAR DISORDER
  2. ACETYLSALICYLIC ACID SRT [Concomitant]
  3. YAZ [Suspect]
     Indication: PRODUCT USED FOR UNKNOWN INDICATION
     Dosage: UNK
     Route: 048
     Dates: start: 20040101, end: 20050101
  4. TRAMADOL HCL [Concomitant]
     Dosage: 50 MG, UNK
  5. LISINOPRIL [Concomitant]
     Dosage: 5 MG, UNK
  6. DEPAKOTE [Concomitant]
     Indication: BIPOLAR DISORDER
  7. YASMIN [Suspect]
     Indication: PRODUCT USED FOR UNKNOWN INDICATION
     Dosage: UNK
     Route: 048
     Dates: start: 20040101, end: 20050101
  8. ALBUTEROL [Concomitant]
  9. NUVARING [Concomitant]
     Indication: CONTRACEPTION
     Dosage: UNK
     Dates: start: 20040317

REACTIONS (1)
  - PULMONARY EMBOLISM [None]
